FAERS Safety Report 18039203 (Version 1)
Quarter: 2020Q3

REPORT INFORMATION
  Report Type: Spontaneous
  Country: FR (occurrence: FR)
  Receive Date: 20200718
  Receipt Date: 20200718
  Transmission Date: 20201103
  Serious: Yes (Hospitalization)
  Sender: FDA-Public Use
  Company Number: FR-CADILA HEALTHCARE LIMITED-FR-ZYDUS-025476

PATIENT

DRUGS (3)
  1. ALDACTONE [Suspect]
     Active Substance: SPIRONOLACTONE
     Indication: GENERALISED OEDEMA
     Dosage: 100 MILLIGRAM,(INTERVAL :1 DAYS)
     Route: 048
     Dates: start: 201712, end: 201802
  2. MIRTAZAPINE. [Suspect]
     Active Substance: MIRTAZAPINE
     Indication: ANOREXIA NERVOSA
     Dosage: 30 MILLIGRAM,(INTERVAL :1 DAYS)
     Route: 048
     Dates: end: 20180207
  3. RISPERIDONE. [Suspect]
     Active Substance: RISPERIDONE
     Indication: ANOREXIA NERVOSA
     Route: 048
     Dates: end: 20180207

REACTIONS (1)
  - Acute generalised exanthematous pustulosis [Recovered/Resolved]

NARRATIVE: CASE EVENT DATE: 20180207
